FAERS Safety Report 6154567-6 (Version None)
Quarter: 2009Q2

REPORT INFORMATION
  Report Type: 
  Country: None (occurrence: None)
  Receive Date: 20090414
  Receipt Date: 20090414
  Transmission Date: 20091009
  Serious: Yes (Other)
  Sender: FDA-Public Use
  Company Number: A0778292A

PATIENT
  Sex: Male

DRUGS (1)
  1. COMMIT [Suspect]
     Indication: DRUG USE FOR UNKNOWN INDICATION
     Route: 002

REACTIONS (7)
  - ASTHENIA [None]
  - CHILLS [None]
  - IMPAIRED HEALING [None]
  - INFECTED CYST [None]
  - INTENTIONAL DRUG MISUSE [None]
  - NAUSEA [None]
  - TREMOR [None]
